FAERS Safety Report 16344289 (Version 1)
Quarter: 2019Q2

REPORT INFORMATION
  Report Type: Spontaneous
  Country: GR (occurrence: GR)
  Receive Date: 20190522
  Receipt Date: 20190522
  Transmission Date: 20190711
  Serious: Yes (Other)
  Sender: FDA-Public Use
  Company Number: GR-PFIZER INC-2019213365

PATIENT
  Age: 77 Year
  Sex: Female

DRUGS (2)
  1. LYRICA [Suspect]
     Active Substance: PREGABALIN
     Dosage: 75 MG, 2X/DAY (MORNING AND NIGHT)
     Dates: start: 201905
  2. LYRICA [Suspect]
     Active Substance: PREGABALIN
     Indication: PAIN
     Dosage: 150 MG, 2X/DAY
     Dates: start: 201904, end: 2019

REACTIONS (8)
  - Dry eye [Unknown]
  - Drug ineffective [Unknown]
  - Intentional product misuse [Unknown]
  - Eye pruritus [Unknown]
  - Dry mouth [Unknown]
  - Pruritus [Unknown]
  - Parkinson^s disease [Unknown]
  - Tremor [Unknown]

NARRATIVE: CASE EVENT DATE: 2019
